FAERS Safety Report 4433185-1 (Version None)
Quarter: 2004Q3

REPORT INFORMATION
  Report Type: 
  Country: None (occurrence: None)
  Receive Date: 20040823
  Receipt Date: 20040809
  Transmission Date: 20050211
  Serious: Yes (Other)
  Sender: FDA-Public Use
  Company Number: 2004048809

PATIENT
  Sex: Male

DRUGS (2)
  1. MINIPRESS [Suspect]
     Indication: HYPERTENSION
     Dosage: ORAL
     Route: 048
     Dates: end: 20000901
  2. ANTIHYPERTENSIVES (ANTIHYPERTENSIVES) [Concomitant]

REACTIONS (6)
  - BALANCE DISORDER [None]
  - ERECTILE DYSFUNCTION [None]
  - HEART VALVE INSUFFICIENCY [None]
  - UNEXPECTED THERAPEUTIC DRUG EFFECT [None]
  - VASCULAR BYPASS GRAFT [None]
  - WEIGHT DECREASED [None]
